FAERS Safety Report 7012479-X (Version None)
Quarter: 2010Q3

REPORT INFORMATION
  Report Type: 
  Country: None (occurrence: None)
  Receive Date: 20100924
  Receipt Date: 20100915
  Transmission Date: 20110219
  Serious: Yes (Hospitalization)
  Sender: FDA-Public Use
  Company Number: JP-BRISTOL-MYERS SQUIBB COMPANY-14456172

PATIENT
  Age: 58 Year
  Sex: Male

DRUGS (5)
  1. PARAPLATIN [Suspect]
     Indication: LUNG NEOPLASM MALIGNANT
     Dosage: THERAPY DATES: 06-OCT-2008 TO 09-DEC-2008 . DURATION OF THERAPY: FOUR DAYS.
     Route: 041
     Dates: start: 20081006, end: 20081006
  2. TAXOL [Suspect]
     Indication: LUNG NEOPLASM MALIGNANT
     Dosage: THERAPY DATES: 28OCT08,18NOV08,09DEC08
     Route: 041
     Dates: start: 20081006, end: 20081006
  3. MAGLAX [Concomitant]
     Route: 048
     Dates: start: 20081009
  4. ZOFRAN [Concomitant]
     Route: 048
     Dates: start: 20081003
  5. CONTOMIN [Concomitant]
     Route: 048
     Dates: start: 20081013

REACTIONS (1)
  - PNEUMOTHORAX [None]
